FAERS Safety Report 5679987-5 (Version None)
Quarter: 2008Q1

REPORT INFORMATION
  Report Type: 
  Country: None (occurrence: None)
  Receive Date: 20080325
  Receipt Date: 20080325
  Transmission Date: 20080703
  Serious: Yes (Other)
  Sender: FDA-Public Use
  Company Number: None

PATIENT
  Age: 74 Year
  Sex: Male
  Weight: 87.09 kg

DRUGS (2)
  1. CEFTRIAXONE [Suspect]
     Indication: OSTEOMYELITIS
     Dosage: 2 GM EVERY 24 HOURS IV
     Route: 042
     Dates: start: 20080310, end: 20080317
  2. VANCOMYCIN [Suspect]
     Indication: OSTEOMYELITIS
     Dosage: 1 GM EVERY 12 HOURS IV
     Route: 042
     Dates: start: 20080310, end: 20080317

REACTIONS (3)
  - DRUG HYPERSENSITIVITY [None]
  - REFUSAL OF TREATMENT BY PATIENT [None]
  - URTICARIA [None]
